FAERS Safety Report 5087504-6 (Version None)
Quarter: 2006Q3

REPORT INFORMATION
  Report Type: 
  Country: None (occurrence: None)
  Receive Date: 20060822
  Receipt Date: 20060822
  Transmission Date: 20061208
  Serious: Yes (Life-Threatening, Hospitalization)
  Sender: FDA-Public Use
  Company Number: None

PATIENT
  Age: 50 Year
  Sex: Male
  Weight: 145.151 kg

DRUGS (14)
  1. INTERFERON ALPHA-2B 150MCG [Suspect]
     Indication: HEPATITIS C
     Dosage: 150 MCG SC QWEEK
     Route: 058
     Dates: start: 20060322, end: 20060603
  2. RIBAVIRIN [Suspect]
     Indication: HEPATITIS C
     Dosage: 600MG QAM, 800 MG QPM
     Dates: start: 20060322, end: 20060603
  3. FLUNISOLIDE [Concomitant]
  4. ALBUTEROL SPIROS [Concomitant]
  5. CITALOPRAM [Concomitant]
  6. DANTROLENE [Concomitant]
  7. VICODIN [Concomitant]
  8. LORATADINE [Concomitant]
  9. OMEPRAZOLE [Concomitant]
  10. TERAZOSIN HCL [Concomitant]
  11. TRAMADOL HCL [Concomitant]
  12. TRAZODONE HCL [Concomitant]
  13. MONTELUKAST [Concomitant]
  14. FORMOTEROL [Concomitant]

REACTIONS (7)
  - AFFECT LABILITY [None]
  - AGGRESSION [None]
  - AGITATION [None]
  - ANGER [None]
  - HOMICIDAL IDEATION [None]
  - IRRITABILITY [None]
  - MOOD ALTERED [None]
